FAERS Safety Report 5805783-1 (Version None)
Quarter: 2008Q3

REPORT INFORMATION
  Report Type: 
  Country: None (occurrence: None)
  Receive Date: 20080710
  Receipt Date: 20080704
  Transmission Date: 20090109
  Serious: Yes (Life-Threatening, Hospitalization, Other)
  Sender: FDA-Public Use
  Company Number: GB-TEVA-173789ISR

PATIENT
  Age: 74 Year
  Sex: Female

DRUGS (1)
  1. GABAPENTIN [Suspect]
     Indication: BACK PAIN
     Route: 048
     Dates: start: 20080528, end: 20080602

REACTIONS (2)
  - ESCHERICHIA SEPSIS [None]
  - NEUTROPENIA [None]
